FAERS Safety Report 12237871 (Version 1)
Quarter: 2016Q2

REPORT INFORMATION
  Report Type: Spontaneous
  Country: CA (occurrence: None)
  Receive Date: 20160404
  Receipt Date: 20160404
  Transmission Date: 20160815
  Serious: Yes (Hospitalization)
  Sender: FDA-Public Use
  Company Number: None

PATIENT
  Age: 45 Year
  Sex: Female
  Weight: 86.18 kg

DRUGS (7)
  1. PENTASA [Concomitant]
     Active Substance: MESALAMINE
  2. PENTASA [Suspect]
     Active Substance: MESALAMINE
     Indication: INFLAMMATORY BOWEL DISEASE
     Dates: start: 20160211
  3. MAGNESIUM [Concomitant]
     Active Substance: MAGNESIUM
  4. PENTASA [Suspect]
     Active Substance: MESALAMINE
     Indication: COLITIS ULCERATIVE
     Dates: start: 20160211
  5. VITAMIN D [Concomitant]
     Active Substance: CHOLECALCIFEROL
  6. MIRENA [Suspect]
     Active Substance: LEVONORGESTREL
  7. CALCIUM [Concomitant]
     Active Substance: CALCIUM

REACTIONS (2)
  - Dizziness [None]
  - Headache [None]

NARRATIVE: CASE EVENT DATE: 20160402
